FAERS Safety Report 14575981 (Version 2)
Quarter: 2018Q2

REPORT INFORMATION
  Report Type: Report from Study
  Country: None (occurrence: BR)
  Receive Date: 20180227
  Receipt Date: 20180409
  Transmission Date: 20180711
  Serious: Yes (Death, Hospitalization, Other)
  Sender: FDA-Public Use
  Company Number: BR-ABBVIE-18K-020-2268364-00

PATIENT
  Sex: Female

DRUGS (1)
  1. HUMIRA [Suspect]
     Active Substance: ADALIMUMAB
     Indication: RHEUMATOID ARTHRITIS
     Route: 058
     Dates: start: 20170331, end: 201712

REACTIONS (15)
  - Immunodeficiency [Unknown]
  - Abdominal distension [Unknown]
  - Inflammation [Unknown]
  - Anal sphincter atony [Unknown]
  - Endocarditis bacterial [Unknown]
  - Depressed level of consciousness [Recovered/Resolved]
  - Systemic bacterial infection [Fatal]
  - Meningitis aseptic [Recovered/Resolved]
  - Dyschezia [Unknown]
  - Drug ineffective [Unknown]
  - Gait disturbance [Unknown]
  - Septic shock [Fatal]
  - Tremor [Unknown]
  - Chills [Unknown]
  - Pyrexia [Unknown]

NARRATIVE: CASE EVENT DATE: 2017
